FAERS Safety Report 5808450-3 (Version None)
Quarter: 2008Q3

REPORT INFORMATION
  Report Type: 
  Country: None (occurrence: None)
  Receive Date: 20080710
  Receipt Date: 20080710
  Transmission Date: 20090109
  Serious: No
  Sender: FDA-Public Use
  Company Number: None

PATIENT
  Sex: Female
  Weight: 77.7919 kg

DRUGS (1)
  1. TUBERSOL [Suspect]
     Indication: PSORIASIS
     Dosage: 0.1 ML ONCE INTRADERMAL
     Route: 023
     Dates: start: 20080627

REACTIONS (2)
  - ERYTHEMA [None]
  - RASH [None]
